FAERS Safety Report 10748062 (Version 4)
Quarter: 2015Q1

REPORT INFORMATION
  Report Type: Spontaneous
  Country: JP (occurrence: JP)
  Receive Date: 20150129
  Receipt Date: 20150318
  Transmission Date: 20150721
  Serious: Yes (Life-Threatening, Hospitalization)
  Sender: FDA-Public Use
  Company Number: JP-JNJFOC-20150118114

PATIENT
  Age: 74 Year
  Sex: Male
  Weight: 65 kg

DRUGS (4)
  1. TRAMCET [Suspect]
     Active Substance: ACETAMINOPHEN\TRAMADOL
     Indication: PAIN
     Dosage: ONE DOSE, THREE TIMES PER DAY
     Route: 048
     Dates: start: 20141219, end: 20141228
  2. PRIMPERAN [Concomitant]
     Active Substance: METOCLOPRAMIDE HYDROCHLORIDE
     Dosage: THRICE PER DAY
     Route: 048
     Dates: start: 20141219, end: 20141228
  3. MAGMITT [Concomitant]
     Active Substance: MAGNESIUM OXIDE
     Dosage: TWICE PER DAY
     Route: 048
     Dates: start: 20141219, end: 20141228
  4. LYRICA [Concomitant]
     Active Substance: PREGABALIN
     Indication: PRODUCT USED FOR UNKNOWN INDICATION
     Dosage: 75 MG TWICE PER DAY
     Route: 048
     Dates: start: 20141219, end: 20141228

REACTIONS (6)
  - Aspiration [Recovering/Resolving]
  - Bronchitis [Recovering/Resolving]
  - Incontinence [Recovering/Resolving]
  - Altered state of consciousness [Recovering/Resolving]
  - Feeding disorder [Recovering/Resolving]
  - Muscular weakness [Recovering/Resolving]

NARRATIVE: CASE EVENT DATE: 20141228
